FAERS Safety Report 4668497-X (Version None)
Quarter: 2005Q2

REPORT INFORMATION
  Report Type: 
  Country: None (occurrence: None)
  Receive Date: 20050518
  Receipt Date: 20050429
  Transmission Date: 20051028
  Serious: Yes (Hospitalization)
  Sender: FDA-Public Use
  Company Number: B0379898A

PATIENT
  Age: 89 Year
  Sex: Female

DRUGS (2)
  1. AUGMENTIN '250' [Suspect]
     Dosage: ORAL
     Route: 048
     Dates: start: 20050207, end: 20050207
  2. CEFTRIAXONE SODIUM INJECTION (CEFTRIAXONE SODIUM) [Suspect]
     Dosage: INTRAVENOUS
     Route: 042
     Dates: start: 20050207, end: 20050218

REACTIONS (1)
  - CLOSTRIDIUM COLITIS [None]
